FAERS Safety Report 9266643 (Version 3)
Quarter: 2014Q2

REPORT INFORMATION
  Report Type: Report from Study
  Country: US (occurrence: US)
  Receive Date: 20130502
  Receipt Date: 20140416
  Transmission Date: 20141212
  Serious: Yes (Hospitalization)
  Sender: FDA-Public Use
  Company Number: US-009507513-2012SP008110

PATIENT
  Age: 42 Year
  Sex: Female
  Weight: 86.18 kg

DRUGS (7)
  1. BLINDED CORIFOLLITROPIN ALFA [Suspect]
     Indication: INFERTILITY
     Dosage: UNK
     Route: 058
     Dates: start: 20100828, end: 20100828
  2. BLINDED CORIFOLLITROPIN ALFA [Suspect]
     Indication: OVULATION INDUCTION
  3. BLINDED THERAPY [Suspect]
     Indication: INFERTILITY
     Dosage: UNK
     Route: 058
     Dates: start: 20100828, end: 20100905
  4. MK-8328 [Suspect]
     Indication: INFERTILITY
     Dosage: 300 IU/DAY X2
     Route: 058
     Dates: start: 20100904, end: 20100905
  5. VIVELLE-DOT [Concomitant]
     Indication: INFERTILITY
     Dosage: 0.1 MG, QOD
     Route: 062
     Dates: start: 20101020, end: 20110119
  6. CRINONE [Concomitant]
     Indication: INFERTILITY
     Dosage: 92 MG, BID
     Route: 067
     Dates: start: 20101103, end: 20110119
  7. FOLLISTIM AQ [Concomitant]
     Indication: INFERTILITY
     Dosage: OPEN LABEL FSH; KIT NUMBER 60/016; DOSE IN SERIES 2
     Route: 058
     Dates: start: 20100904, end: 20100905

REACTIONS (2)
  - Caesarean section [Recovered/Resolved]
  - Assisted fertilisation [Recovered/Resolved]
